FAERS Safety Report 19814149 (Version 1)
Quarter: 2021Q3

REPORT INFORMATION
  Report Type: Spontaneous
  Country: DE (occurrence: DE)
  Receive Date: 20210910
  Receipt Date: 20210910
  Transmission Date: 20211014
  Serious: Yes (Other)
  Sender: FDA-Public Use
  Company Number: DE-MYLANLABS-2021M1059311

PATIENT
  Age: 38 Year
  Sex: Male

DRUGS (1)
  1. IBUPROFEN. [Suspect]
     Active Substance: IBUPROFEN
     Indication: PROCEDURAL PAIN
     Dosage: 600 MILLIGRAM, TID

REACTIONS (3)
  - Non-cardiogenic pulmonary oedema [Unknown]
  - Dyspnoea [Unknown]
  - Cough [Unknown]
